FAERS Safety Report 5217706-7 (Version None)
Quarter: 2006Q4

REPORT INFORMATION
  Report Type: 
  Country: None (occurrence: None)
  Receive Date: 20061130
  Receipt Date: 20060614
  Transmission Date: 20070319
  Serious: Yes (Other)
  Sender: FDA-Public Use
  Company Number: US200601005175

PATIENT
  Age: 28 Year
  Sex: 0
  Weight: 69.8 kg

DRUGS (2)
  1. ZYPREXA [Suspect]
     Indication: SCHIZOPHRENIA
     Dates: start: 19980501, end: 20000201
  2. NAVANE [Concomitant]

REACTIONS (5)
  - DIABETES MELLITUS NON-INSULIN-DEPENDENT [None]
  - HYPERGLYCAEMIA [None]
  - POLLAKIURIA [None]
  - THIRST [None]
  - WEIGHT INCREASED [None]
